FAERS Safety Report 7034730-2 (Version None)
Quarter: 2010Q4

REPORT INFORMATION
  Report Type: 
  Country: None (occurrence: None)
  Receive Date: 20101008
  Receipt Date: 20100928
  Transmission Date: 20110411
  Serious: Yes (Other)
  Sender: FDA-Public Use
  Company Number: PHHY2010BR31163

PATIENT
  Sex: Female

DRUGS (8)
  1. DIOVAN HCT [Suspect]
     Indication: HYPERTENSION
     Dosage: 1 TABLET (320/12.5 MG) DAILY
     Route: 048
     Dates: start: 20080901
  2. FOLIC ACID [Concomitant]
     Indication: THROMBOCYTOPENIA
     Dosage: 1 TABLET DAILY
     Route: 048
  3. MONOCORDIL [Concomitant]
     Indication: CATHETER PLACEMENT
     Dosage: 1 TABLET DAILY
     Route: 048
     Dates: start: 20080801
  4. SIMVASTATIN [Concomitant]
     Dosage: 1 TABLET DAILY
     Route: 048
  5. LORAX [Concomitant]
  6. SERTRALINE [Concomitant]
     Indication: DEPRESSION
     Dosage: 1 TABLET DAILY
     Route: 048
  7. TYLENOL [Concomitant]
     Indication: THROMBOCYTOPENIA
     Dosage: 1 TABLET DAILY
     Route: 048
  8. INSULIN HUMAN [Concomitant]
     Indication: TYPE 2 DIABETES MELLITUS
     Dosage: 34 IU DAILY
     Route: 058

REACTIONS (2)
  - BLOOD PRESSURE INCREASED [None]
  - DRUG DOSE OMISSION [None]
